FAERS Safety Report 23660699 (Version 2)
Quarter: 2024Q2

REPORT INFORMATION
  Report Type: Spontaneous
  Country: US (occurrence: None)
  Receive Date: 20240322
  Receipt Date: 20240405
  Transmission Date: 20240716
  Serious: Yes (Other)
  Sender: FDA-Public Use
  Company Number: US-ROCHE-3529063

PATIENT
  Sex: Male

DRUGS (3)
  1. AVASTIN [Suspect]
     Active Substance: BEVACIZUMAB
     Indication: Neovascular age-related macular degeneration
     Route: 031
     Dates: start: 2012, end: 2015
  2. AVASTIN [Suspect]
     Active Substance: BEVACIZUMAB
     Dosage: MOST RECENT DOSE RECEIVED IN FEB/2024
     Route: 031
     Dates: start: 2016
  3. MAGNESIUM [Concomitant]
     Active Substance: MAGNESIUM
     Indication: Palpitations
     Route: 048

REACTIONS (4)
  - Off label use [Unknown]
  - Visual impairment [Unknown]
  - Cardiac disorder [Recovering/Resolving]
  - Transient ischaemic attack [Unknown]

NARRATIVE: CASE EVENT DATE: 20200101
